FAERS Safety Report 8519181-3 (Version None)
Quarter: 2012Q3

REPORT INFORMATION
  Report Type: 
  Country: None (occurrence: None)
  Receive Date: 20120718
  Receipt Date: 20120713
  Transmission Date: 20120928
  Serious: Yes (Hospitalization)
  Sender: FDA-Public Use
  Company Number: CA-ABBOTT-12P-028-0926509-00

PATIENT
  Sex: Female
  Weight: 75.1 kg

DRUGS (2)
  1. HUMIRA [Suspect]
     Indication: RHEUMATOID ARTHRITIS
     Route: 058
     Dates: start: 20110316, end: 20120402
  2. HUMIRA [Suspect]
     Dates: start: 20120508

REACTIONS (5)
  - PNEUMONIA [None]
  - ORTHOSTATIC HYPOTENSION [None]
  - FALL [None]
  - PRESYNCOPE [None]
  - JOINT INJURY [None]
